APPROVED DRUG PRODUCT: CHLORPROMAZINE HYDROCHLORIDE
Active Ingredient: CHLORPROMAZINE HYDROCHLORIDE
Strength: 10MG
Dosage Form/Route: TABLET;ORAL
Application: A212630 | Product #001 | TE Code: AB
Applicant: ZAMEER PHARMACEUTICALS LLC
Approved: Nov 29, 2021 | RLD: No | RS: No | Type: RX